FAERS Safety Report 9677303 (Version 1)
Quarter: 2013Q4

REPORT INFORMATION
  Report Type: Spontaneous
  Country: US (occurrence: None)
  Receive Date: 20131107
  Receipt Date: 20131107
  Transmission Date: 20140711
  Serious: No
  Sender: FDA-Public Use
  Company Number: None

PATIENT
  Age: 66 Year
  Sex: Male
  Weight: 92.53 kg

DRUGS (1)
  1. TRAZOADONE [Suspect]
     Indication: SLEEP DISORDER THERAPY
     Dosage: ONE TAB AT BEDTIME TAKEN BY MOUTH
     Route: 048
     Dates: start: 20090703, end: 20131106

REACTIONS (2)
  - Drug ineffective [None]
  - Product substitution issue [None]
